FAERS Safety Report 7397070-8 (Version None)
Quarter: 2011Q2

REPORT INFORMATION
  Report Type: 
  Country: None (occurrence: None)
  Receive Date: 20110406
  Receipt Date: 20110325
  Transmission Date: 20111010
  Serious: Yes (Hospitalization)
  Sender: FDA-Public Use
  Company Number: A0773184A

PATIENT
  Age: 54 Year
  Sex: Female
  Weight: 109.5 kg

DRUGS (7)
  1. SPIRONOLACTONE [Concomitant]
  2. AVANDAMET [Suspect]
     Indication: DIABETES MELLITUS
     Route: 048
     Dates: start: 20030505, end: 20050301
  3. AVANDIA [Suspect]
     Indication: DIABETES MELLITUS
     Dosage: 8MG PER DAY
     Route: 048
     Dates: start: 20030126, end: 20070401
  4. METFORMIN [Concomitant]
  5. ACTOS [Concomitant]
  6. LISINOPRIL [Concomitant]
  7. IRON [Concomitant]

REACTIONS (2)
  - MYOCARDIAL INFARCTION [None]
  - PRURITUS [None]
